FAERS Safety Report 8097324 (Version 5)
Quarter: 2014Q3

REPORT INFORMATION
  Report Type: Spontaneous
  Country: US (occurrence: US)
  Receive Date: 20110819
  Receipt Date: 20140729
  Transmission Date: 20150326
  Serious: Yes (Hospitalization, Other)
  Sender: FDA-Public Use
  Company Number: US-RANBAXY-2011RR-46739

PATIENT
  Age: 75 Year
  Sex: Female

DRUGS (33)
  1. FUROSEMIDE. [Suspect]
     Active Substance: FUROSEMIDE
     Indication: PRODUCT USED FOR UNKNOWN INDICATION
     Dosage: 20 MG, UNK
     Route: 065
  2. BENICAR [Suspect]
     Active Substance: OLMESARTAN MEDOXOMIL
     Indication: HYPERTENSION
     Dosage: UNK
     Route: 048
     Dates: start: 2007
  3. NORVASC [Suspect]
     Active Substance: AMLODIPINE BESYLATE
     Indication: BLOOD PRESSURE INCREASED
     Dosage: 2.5 MG, QD
     Route: 048
     Dates: start: 20100719, end: 20100721
  4. NORVASC [Suspect]
     Active Substance: AMLODIPINE BESYLATE
     Dosage: 5 MG, BID
     Route: 048
     Dates: start: 2010
  5. NORVASC [Suspect]
     Active Substance: AMLODIPINE BESYLATE
     Dosage: 2.5 MG/DAY
     Route: 048
     Dates: start: 1994
  6. REGLAN [Suspect]
     Active Substance: METOCLOPRAMIDE HYDROCHLORIDE
     Indication: PRODUCT USED FOR UNKNOWN INDICATION
     Dosage: UNK
     Route: 065
  7. LIDOCAINE. [Suspect]
     Active Substance: LIDOCAINE
     Indication: ANAESTHESIA
     Dosage: UNK
     Route: 065
     Dates: start: 20100513, end: 20100513
  8. AVAPRO [Suspect]
     Active Substance: IRBESARTAN
     Indication: HYPERTENSION
     Dosage: UNK
     Route: 065
  9. BYSTOLIC [Suspect]
     Active Substance: NEBIVOLOL HYDROCHLORIDE
     Indication: PRODUCT USED FOR UNKNOWN INDICATION
     Dosage: UNK
     Route: 005
  10. LEVAQUIN [Suspect]
     Active Substance: LEVOFLOXACIN
     Indication: PRODUCT USED FOR UNKNOWN INDICATION
     Dosage: UNK
     Route: 065
  11. DIOVAN [Suspect]
     Active Substance: VALSARTAN
     Indication: PRODUCT USED FOR UNKNOWN INDICATION
     Dosage: UNK
     Route: 065
  12. TOPROL XL [Suspect]
     Active Substance: METOPROLOL SUCCINATE
     Indication: HEART RATE ABNORMAL
     Dosage: 25 MG/DAY
     Route: 048
  13. NOPALEA [Suspect]
     Active Substance: DIETARY SUPPLEMENT
     Indication: MUSCULOSKELETAL PAIN
     Dosage: UNK
     Route: 065
     Dates: start: 2010
  14. CLONIDINE. [Concomitant]
     Active Substance: CLONIDINE
     Indication: BLOOD PRESSURE ABNORMAL
     Dosage: 0.5 MG, TID
     Route: 048
  15. NORVASC [Suspect]
     Active Substance: AMLODIPINE BESYLATE
     Dosage: 5 MG, QD
     Route: 048
     Dates: start: 1997
  16. DEPAKOTE [Suspect]
     Active Substance: DIVALPROEX SODIUM
     Indication: CONVULSION
     Dosage: UNK
     Route: 065
     Dates: start: 1995, end: 2004
  17. LOSARTAN [Suspect]
     Active Substance: LOSARTAN
     Indication: PRODUCT USED FOR UNKNOWN INDICATION
     Dosage: UNK
     Route: 065
  18. NORVASC [Suspect]
     Active Substance: AMLODIPINE BESYLATE
     Dosage: 0.5 DF/DAY
     Route: 048
  19. DILANTIN [Suspect]
     Active Substance: PHENYTOIN
     Indication: CONVULSION
     Dosage: UNK
     Route: 065
     Dates: start: 1995
  20. XANAX [Suspect]
     Active Substance: ALPRAZOLAM
     Indication: PRODUCT USED FOR UNKNOWN INDICATION
     Dosage: 0.5 DF, QD
     Route: 065
  21. BACTRIM [Suspect]
     Active Substance: SULFAMETHOXAZOLE\TRIMETHOPRIM
     Indication: PRODUCT USED FOR UNKNOWN INDICATION
     Dosage: UNK
     Route: 065
  22. TOPROL XL [Suspect]
     Active Substance: METOPROLOL SUCCINATE
     Indication: FLUSHING
  23. METROPOLOL SUCCINATE [Concomitant]
     Indication: PRODUCT USED FOR UNKNOWN INDICATION
     Route: 065
  24. CARDIZEM [Suspect]
     Active Substance: DILTIAZEM HYDROCHLORIDE
     Indication: PRODUCT USED FOR UNKNOWN INDICATION
     Dosage: UNK
     Route: 065
  25. ATACAND [Suspect]
     Active Substance: CANDESARTAN CILEXETIL
     Indication: RENAL DISORDER
     Dosage: 32 MG/DAY
     Route: 048
     Dates: start: 1995
  26. NOPALEA [Suspect]
     Active Substance: DIETARY SUPPLEMENT
     Indication: BLOOD TRIGLYCERIDES INCREASED
  27. LEVOTHYROXINE SODIUM. [Concomitant]
     Active Substance: LEVOTHYROXINE SODIUM
     Indication: PRODUCT USED FOR UNKNOWN INDICATION
     Dosage: UNK
     Route: 065
  28. LISINOPRIL. [Suspect]
     Active Substance: LISINOPRIL
     Indication: PRODUCT USED FOR UNKNOWN INDICATION
     Dosage: UNK
     Route: 065
  29. NORVASC [Suspect]
     Active Substance: AMLODIPINE BESYLATE
     Dosage: 0.5 DF/DAY
     Route: 048
     Dates: start: 20100722
  30. MACROBID [Suspect]
     Active Substance: NITROFURANTOIN\NITROFURANTOIN MONOHYDRATE
     Indication: PRODUCT USED FOR UNKNOWN INDICATION
     Dosage: UNK
     Route: 065
  31. CIPRO [Suspect]
     Active Substance: CIPROFLOXACIN HYDROCHLORIDE
     Indication: PRODUCT USED FOR UNKNOWN INDICATION
     Dosage: UNK
     Route: 065
  32. LIDOCAINE. [Suspect]
     Active Substance: LIDOCAINE
     Indication: INGROWING NAIL
  33. HYDROCHLOROTHIAZIDE. [Suspect]
     Active Substance: HYDROCHLOROTHIAZIDE
     Indication: PRODUCT USED FOR UNKNOWN INDICATION
     Dosage: UNK
     Route: 065
     Dates: start: 20110307

REACTIONS (34)
  - Blood triglycerides increased [Unknown]
  - Toe operation [Recovered/Resolved]
  - Burning sensation [Unknown]
  - Hypoaesthesia [Unknown]
  - Convulsion [Unknown]
  - Micturition frequency decreased [Unknown]
  - Urinary incontinence [Unknown]
  - Palpitations [Recovered/Resolved]
  - Platelet count decreased [Unknown]
  - Kidney infection [Unknown]
  - Loss of consciousness [Recovered/Resolved]
  - Cholecystectomy [Unknown]
  - Ingrowing nail [Recovered/Resolved]
  - Weight decreased [Not Recovered/Not Resolved]
  - Blood count abnormal [Unknown]
  - Arterial occlusive disease [Unknown]
  - Carbuncle [Unknown]
  - Abdominal distension [Recovered/Resolved]
  - Headache [Recovered/Resolved]
  - Fall [Unknown]
  - Insomnia [Unknown]
  - Anaemia [Unknown]
  - Hypertension [Not Recovered/Not Resolved]
  - Nervousness [Unknown]
  - Blood pressure increased [Not Recovered/Not Resolved]
  - Pulmonary mass [Unknown]
  - Abdominal pain [Unknown]
  - Drug ineffective [Unknown]
  - Cystitis [Unknown]
  - Arteriosclerosis coronary artery [Unknown]
  - Dizziness [Recovered/Resolved]
  - Gallbladder disorder [Unknown]
  - Feeling hot [Unknown]
  - Drug interaction [Unknown]

NARRATIVE: CASE EVENT DATE: 1995
